FAERS Safety Report 9146191 (Version 1)
Quarter: 2013Q1

REPORT INFORMATION
  Report Type: Spontaneous
  Country: BR (occurrence: BR)
  Receive Date: 20130307
  Receipt Date: 20130307
  Transmission Date: 20140127
  Serious: Yes (Death, Hospitalization, Other)
  Sender: FDA-Public Use
  Company Number: PHHY2013BR022133

PATIENT
  Sex: Male

DRUGS (3)
  1. FORASEQ [Suspect]
     Indication: DYSPNOEA
     Dosage: (TWICE A DAY)
     Dates: start: 201212
  2. FORASEQ [Suspect]
     Indication: TUBERCULOSIS
  3. SPIRIVA [Suspect]
     Dosage: UNK

REACTIONS (1)
  - Cystic fibrosis [Fatal]
